FAERS Safety Report 7089011-8 (Version None)
Quarter: 2010Q4

REPORT INFORMATION
  Report Type: 
  Country: None (occurrence: None)
  Receive Date: 20101108
  Receipt Date: 20101103
  Transmission Date: 20110411
  Serious: Yes (Other)
  Sender: FDA-Public Use
  Company Number: A0858581A

PATIENT
  Sex: Female

DRUGS (4)
  1. TYKERB [Suspect]
     Dosage: 1250MG PER DAY
     Route: 048
     Dates: start: 20100312, end: 20101018
  2. XELODA [Concomitant]
     Route: 065
  3. VITAMIN D [Concomitant]
     Route: 065
  4. VITAMIN B3 [Concomitant]
     Route: 065

REACTIONS (8)
  - BREAST CANCER METASTATIC [None]
  - DIARRHOEA [None]
  - DIZZINESS [None]
  - DYSPNOEA [None]
  - INFLAMMATORY CARCINOMA OF THE BREAST [None]
  - PALMAR-PLANTAR ERYTHRODYSAESTHESIA SYNDROME [None]
  - PARAESTHESIA [None]
  - SKIN CHAPPED [None]
